FAERS Safety Report 6130532-X (Version None)
Quarter: 2009Q1

REPORT INFORMATION
  Report Type: 
  Country: None (occurrence: None)
  Receive Date: 20090323
  Receipt Date: 20090309
  Transmission Date: 20090719
  Serious: Yes (Other)
  Sender: FDA-Public Use
  Company Number: 231622K09USA

PATIENT
  Age: 46 Year
  Sex: Female
  Weight: 59 kg

DRUGS (4)
  1. REBIF [Suspect]
     Indication: MULTIPLE SCLEROSIS
     Dosage: 44 MCG, 3 IN 1 WEEKS, SUBCUTANEOUS
     Route: 058
     Dates: start: 20081217
  2. OXYBUTYNIN (OXYBUTYNIN/00538901/) [Concomitant]
  3. GABAPENTIN [Concomitant]
  4. VITAMINS [Concomitant]

REACTIONS (4)
  - CHEST PAIN [None]
  - CHOLELITHIASIS [None]
  - DRY MOUTH [None]
  - DYSPNOEA [None]
